FAERS Safety Report 9549223 (Version 2)
Quarter: 2013Q3

REPORT INFORMATION
  Report Type: Spontaneous
  Country: US (occurrence: US)
  Receive Date: 20130924
  Receipt Date: 20130924
  Transmission Date: 20140515
  Serious: Yes (Hospitalization, Other)
  Sender: FDA-Public Use
  Company Number: US-GILEAD-2013-0080926

PATIENT
  Sex: Female

DRUGS (2)
  1. LETAIRIS [Suspect]
     Indication: PULMONARY HYPERTENSION
     Dosage: 10 MG, QD
     Route: 048
     Dates: start: 20130122
  2. OXYGEN [Concomitant]
     Dosage: UNK, QHS

REACTIONS (5)
  - Choking [Unknown]
  - Anxiety [Unknown]
  - Choking sensation [Unknown]
  - Dyspnoea [Unknown]
  - Dyspnoea [Unknown]
